FAERS Safety Report 23002447 (Version 2)
Quarter: 2023Q4

REPORT INFORMATION
  Report Type: Spontaneous
  Country: JP (occurrence: JP)
  Receive Date: 20230928
  Receipt Date: 20231005
  Transmission Date: 20240110
  Serious: Yes (Hospitalization)
  Sender: FDA-Public Use
  Company Number: JP-JNJFOC-20230958292

PATIENT
  Age: 84 Year
  Sex: Male

DRUGS (1)
  1. TOPIRAMATE [Suspect]
     Active Substance: TOPIRAMATE
     Indication: Cerebral infarction
     Route: 048

REACTIONS (4)
  - Hospitalisation [Unknown]
  - Underdose [Unknown]
  - Off label use [Unknown]
  - Off label use [Unknown]
